FAERS Safety Report 5296238-4 (Version None)
Quarter: 2007Q2

REPORT INFORMATION
  Report Type: 
  Country: None (occurrence: None)
  Receive Date: 20070413
  Receipt Date: 20070402
  Transmission Date: 20071010
  Serious: Yes (Other)
  Sender: FDA-Public Use
  Company Number: US-JNJFOC-20070400455

PATIENT
  Sex: Female
  Weight: 61.24 kg

DRUGS (9)
  1. REMICADE [Suspect]
     Indication: COLITIS ULCERATIVE
     Route: 042
  2. VICODIN [Concomitant]
  3. LEVOXYL [Concomitant]
  4. PROTONIX [Concomitant]
  5. CALCIUM [Concomitant]
  6. ASACOL [Concomitant]
  7. COMBIVENT [Concomitant]
     Route: 055
  8. ACTONEL [Concomitant]
  9. PREDNISONE TAB [Concomitant]

REACTIONS (1)
  - LUPUS-LIKE SYNDROME [None]
